FAERS Safety Report 5785932-4 (Version None)
Quarter: 2008Q2

REPORT INFORMATION
  Report Type: 
  Country: None (occurrence: None)
  Receive Date: 20080620
  Receipt Date: 20080620
  Transmission Date: 20081010
  Serious: Yes (Other)
  Sender: FDA-Public Use
  Company Number: None

PATIENT
  Age: 48 Year
  Sex: Male
  Weight: 81.6475 kg

DRUGS (1)
  1. LYRICA [Suspect]
     Indication: SLEEP DISORDER
     Dosage: 1  1 AT NIGHT PO
     Route: 048
     Dates: start: 20080618, end: 20080618

REACTIONS (4)
  - ABNORMAL BEHAVIOUR [None]
  - INSOMNIA [None]
  - PHYSICAL ASSAULT [None]
  - SOMNAMBULISM [None]
